FAERS Safety Report 6047474-0 (Version None)
Quarter: 2009Q1

REPORT INFORMATION
  Report Type: 
  Country: None (occurrence: None)
  Receive Date: 20090122
  Receipt Date: 20090120
  Transmission Date: 20090719
  Serious: No
  Sender: FDA-Public Use
  Company Number: US-B.I. PHARMACEUTICALS,INC./RIDGEFIELD-2009-BP-00624BP

PATIENT
  Age: 54 Year
  Sex: Male

DRUGS (10)
  1. FLOMAX [Suspect]
     Indication: URINARY RETENTION
     Dosage: .4MG
     Route: 048
     Dates: start: 20081101
  2. LISINOPRIL [Concomitant]
     Indication: HYPERTENSION
  3. GABAPENTIN [Concomitant]
     Indication: NEUROPATHY PERIPHERAL
  4. SYMVASTATIN [Concomitant]
     Indication: BLOOD CHOLESTEROL INCREASED
  5. DUETACT [Concomitant]
     Indication: DIABETES MELLITUS
  6. LORATADINE [Concomitant]
     Indication: MULTIPLE ALLERGIES
  7. NIASPAN [Concomitant]
     Indication: BLOOD CHOLESTEROL INCREASED
  8. CYMBALTA [Concomitant]
     Indication: DEPRESSION
  9. ALLOPURINOL [Concomitant]
     Indication: GOUT
  10. INSULIN [Concomitant]
     Indication: DIABETES MELLITUS

REACTIONS (2)
  - BLOOD PRESSURE DECREASED [None]
  - ERECTILE DYSFUNCTION [None]
